FAERS Safety Report 9246885 (Version 1)
Quarter: 2013Q2

REPORT INFORMATION
  Report Type: Other
  Country: IT (occurrence: IT)
  Receive Date: 20130422
  Receipt Date: 20130422
  Transmission Date: 20140414
  Serious: Yes (Hospitalization)
  Sender: FDA-Public Use
  Company Number: IT-ACTAVIS-2013-06734

PATIENT
  Age: 72 Year
  Sex: Female

DRUGS (4)
  1. PACLITAXEL (UNKNOWN) [Suspect]
     Indication: BREAST NEOPLASM
     Dosage: 110 MG, DAILY
     Route: 042
     Dates: start: 20130404, end: 20130404
  2. TRIMETON                           /00072502/ [Concomitant]
     Indication: PRODUCT USED FOR UNKNOWN INDICATION
     Dosage: 1 UNK, UNK
     Route: 065
  3. ZANTAC [Concomitant]
     Indication: PRODUCT USED FOR UNKNOWN INDICATION
     Dosage: 1 UNK, UNK
     Route: 065
  4. ONDANSETRONE HIKMA [Concomitant]
     Indication: PRODUCT USED FOR UNKNOWN INDICATION
     Dosage: 1 DF, UNK
     Route: 065

REACTIONS (4)
  - Hypertensive crisis [Recovering/Resolving]
  - Aphasia [Recovering/Resolving]
  - Confusional state [Recovering/Resolving]
  - Dyspnoea [Recovering/Resolving]
